FAERS Safety Report 23087748 (Version 3)
Quarter: 2024Q1

REPORT INFORMATION
  Report Type: Spontaneous
  Country: US (occurrence: US)
  Receive Date: 20231020
  Receipt Date: 20240225
  Transmission Date: 20240410
  Serious: No
  Sender: FDA-Public Use
  Company Number: US-LUPIN PHARMACEUTICALS INC.-2023-09022

PATIENT

DRUGS (5)
  1. ALBUTEROL SULFATE [Suspect]
     Active Substance: ALBUTEROL SULFATE
     Indication: Asthma
     Dosage: UNK, PRN, 2 PUFFS EVERY 4 HOURS AS NEEDED
  2. ALBUTEROL SULFATE [Suspect]
     Active Substance: ALBUTEROL SULFATE
     Indication: Chronic obstructive pulmonary disease
     Dosage: UNK, PRN, 2 PUFFS EVERY 4 HOURS AS NEEDED
  3. ALBUTEROL SULFATE [Suspect]
     Active Substance: ALBUTEROL SULFATE
     Dosage: UNK, PRN (2 PUFFS EVERY 4 HOURS AS NEEDED)
     Dates: start: 202309
  4. COMBIVENT [Concomitant]
     Active Substance: ALBUTEROL SULFATE\IPRATROPIUM BROMIDE
     Indication: Asthma
     Dosage: UNK
     Route: 065
  5. COMBIVENT [Concomitant]
     Active Substance: ALBUTEROL SULFATE\IPRATROPIUM BROMIDE
     Indication: Chronic obstructive pulmonary disease

REACTIONS (3)
  - Dyspnoea [Unknown]
  - Drug dose omission by device [Unknown]
  - Device delivery system issue [Unknown]
